FAERS Safety Report 16362959 (Version 3)
Quarter: 2019Q2

REPORT INFORMATION
  Report Type: Spontaneous
  Country: BE (occurrence: BE)
  Receive Date: 20190528
  Receipt Date: 20190628
  Transmission Date: 20190711
  Serious: Yes (Death)
  Sender: FDA-Public Use
  Company Number: BE-JNJFOC-20190526853

PATIENT
  Age: 73 Year
  Sex: Female

DRUGS (9)
  1. UPSA C [Concomitant]
     Route: 065
  2. RISPERDAL [Interacting]
     Active Substance: RISPERIDONE
     Indication: PRODUCT USED FOR UNKNOWN INDICATION
     Route: 048
  3. BISOPROLOL [Interacting]
     Active Substance: BISOPROLOL
     Indication: PRODUCT USED FOR UNKNOWN INDICATION
     Dosage: 10 MG/5 MG
     Route: 065
  4. MAGNESIUM [Concomitant]
     Active Substance: MAGNESIUM
     Route: 065
  5. XEPLION [Suspect]
     Active Substance: PALIPERIDONE PALMITATE
     Indication: PRODUCT USED FOR UNKNOWN INDICATION
     Route: 030
  6. ALLOPURINOL. [Interacting]
     Active Substance: ALLOPURINOL
     Indication: PRODUCT USED FOR UNKNOWN INDICATION
     Route: 065
  7. METARELAX [Concomitant]
     Route: 065
  8. ZINC. [Concomitant]
     Active Substance: ZINC
     Route: 065
  9. PRESERVISION [Concomitant]
     Active Substance: MINERALS\VITAMINS
     Route: 065

REACTIONS (7)
  - Cerebral haemorrhage [Fatal]
  - Pancytopenia [Fatal]
  - Bone marrow failure [Fatal]
  - Fall [Fatal]
  - Altered state of consciousness [Fatal]
  - Thrombocytopenia [Fatal]
  - Drug interaction [Fatal]
